FAERS Safety Report 11064609 (Version 3)
Quarter: 2015Q2

REPORT INFORMATION
  Report Type: Spontaneous
  Country: BR (occurrence: BR)
  Receive Date: 20150424
  Receipt Date: 20150624
  Transmission Date: 20150821
  Serious: Yes (Disabling, Other)
  Sender: FDA-Public Use
  Company Number: BR-ELI_LILLY_AND_COMPANY-BR201504004954

PATIENT
  Age: 22 Year
  Sex: Male
  Weight: 54 kg

DRUGS (9)
  1. HUMALOG [Suspect]
     Active Substance: INSULIN LISPRO
     Indication: TYPE 1 DIABETES MELLITUS
     Dosage: UNK, QD
     Route: 058
     Dates: start: 2012
  2. FLORINEF ACETATE [Concomitant]
     Active Substance: FLUDROCORTISONE ACETATE
     Dosage: UNK, UNKNOWN
     Route: 065
  3. DESMOPRESSINA [Concomitant]
     Dosage: UNK, UNKNOWN
     Route: 065
  4. DUO-TRAVATAN [Concomitant]
     Active Substance: TIMOLOL MALEATE\TRAVOPROST
     Dosage: UNK, UNKNOWN
     Route: 065
  5. VITANOL                            /00279601/ [Concomitant]
     Dosage: UNK, UNKNOWN
     Route: 065
  6. VIDISIC [Concomitant]
     Dosage: UNK, UNKNOWN
     Route: 065
  7. DORZOLAMIDA                        /01264101/ [Concomitant]
     Dosage: UNK, UNKNOWN
     Route: 065
  8. ADDERA D3 [Concomitant]
     Active Substance: CHOLECALCIFEROL
     Dosage: UNK, UNKNOWN
     Route: 065
  9. GLUCERNA                           /07404101/ [Concomitant]
     Dosage: UNK, UNKNOWN
     Route: 065

REACTIONS (2)
  - Hypoglycaemia [Recovered/Resolved]
  - Blindness [Unknown]

NARRATIVE: CASE EVENT DATE: 2014
